FAERS Safety Report 5194972-8 (Version None)
Quarter: 2006Q4

REPORT INFORMATION
  Report Type: 
  Country: None (occurrence: None)
  Receive Date: 20061227
  Receipt Date: 20061214
  Transmission Date: 20070319
  Serious: Yes (Hospitalization, Other)
  Sender: FDA-Public Use
  Company Number: 2006US002947

PATIENT
  Age: 55 Year
  Sex: Male
  Weight: 76 kg

DRUGS (3)
  1. TACROLIMUS BLINDED (CODE NOT BROKEN)CAPSULE [Suspect]
     Indication: ERECTILE DYSFUNCTION
     Dosage: 2 MG, UID/QD, ORAL; SEE IMAGE
     Route: 048
     Dates: start: 20061109, end: 20061116
  2. TACROLIMUS BLINDED (CODE NOT BROKEN)CAPSULE [Suspect]
     Indication: ERECTILE DYSFUNCTION
     Dosage: 2 MG, UID/QD, ORAL; SEE IMAGE
     Route: 048
     Dates: start: 20061117, end: 20061203
  3. LIPITOR [Concomitant]

REACTIONS (4)
  - HEPATIC FUNCTION ABNORMAL [None]
  - POST PROCEDURAL COMPLICATION [None]
  - PULMONARY EMBOLISM [None]
  - TREATMENT NONCOMPLIANCE [None]
